FAERS Safety Report 8362804-2 (Version None)
Quarter: 2012Q2

REPORT INFORMATION
  Report Type: 
  Country: None (occurrence: None)
  Receive Date: 20120516
  Receipt Date: 20120509
  Transmission Date: 20120825
  Serious: No
  Sender: FDA-Public Use
  Company Number: PHHY2011AU64254

PATIENT
  Sex: Female

DRUGS (7)
  1. ZOLEDRONOC ACID [Suspect]
     Indication: OSTEOPOROSIS
     Dosage: UNK UKN, UNK
     Route: 042
  2. GALVUMET [Concomitant]
     Indication: DIABETES MELLITUS
     Dosage: TWICE DAILY
     Route: 048
     Dates: start: 20100101
  3. LIPITOR [Concomitant]
     Dosage: 10 MG DAILY
     Route: 048
     Dates: start: 20100101
  4. VAGIFEM [Concomitant]
     Dosage: 2 WEEKLY
     Route: 048
     Dates: start: 20100101
  5. ZOMIG [Concomitant]
     Indication: MIGRAINE
     Dosage: UNK UKN, UNK
     Route: 048
     Dates: start: 20100101
  6. ZOLEDRONOC ACID [Suspect]
     Dosage: UNK UKN, UNK
     Route: 042
     Dates: start: 20110707
  7. PERINDOPRIL ERBUMINE [Concomitant]
     Indication: HYPERTENSION
     Dosage: 5 MG IN THE MORNING
     Route: 048
     Dates: start: 20100101

REACTIONS (1)
  - POST PROCEDURAL COMPLICATION [None]
